FAERS Safety Report 8566881-5 (Version None)
Quarter: 2012Q3

REPORT INFORMATION
  Report Type: 
  Country: None (occurrence: None)
  Receive Date: 20120803
  Receipt Date: 20120724
  Transmission Date: 20120928
  Serious: Yes (Other)
  Sender: FDA-Public Use
  Company Number: JP-UCBSA-062864

PATIENT
  Sex: Female

DRUGS (1)
  1. XYZAL [Suspect]
     Indication: ATOPY
     Route: 048

REACTIONS (2)
  - MATERNAL EXPOSURE DURING PREGNANCY [None]
  - ANAPHYLACTIC SHOCK [None]
